FAERS Safety Report 5218977-3 (Version None)
Quarter: 2007Q1

REPORT INFORMATION
  Report Type: 
  Country: None (occurrence: None)
  Receive Date: 20070125
  Receipt Date: 20070115
  Transmission Date: 20070707
  Serious: Yes (Hospitalization)
  Sender: FDA-Public Use
  Company Number: PHRM2007FR00504

PATIENT
  Age: 46 Year
  Sex: Female
  Weight: 125 kg

DRUGS (3)
  1. LEVOTHYROXINE SODIUM [Suspect]
     Dosage: 200 UG, QD
     Route: 048
  2. EFFEXOR [Suspect]
     Dosage: 37.5 MG, QD
     Route: 048
  3. LIORESAL [Suspect]
     Dosage: 10 MG, QD
     Route: 048

REACTIONS (2)
  - PHLEBITIS [None]
  - PULMONARY EMBOLISM [None]
